FAERS Safety Report 18330295 (Version 1)
Quarter: 2020Q3

REPORT INFORMATION
  Report Type: Spontaneous
  Country: US (occurrence: US)
  Receive Date: 20200930
  Receipt Date: 20200930
  Transmission Date: 20201103
  Serious: Yes (Other)
  Sender: FDA-Public Use
  Company Number: None

PATIENT
  Age: 70 Year
  Sex: Male
  Weight: 109 kg

DRUGS (1)
  1. BELANTAMAB MAFODOTIN. [Suspect]
     Active Substance: BELANTAMAB MAFODOTIN
     Indication: PLASMA CELL MYELOMA
     Route: 042
     Dates: start: 20200924, end: 20200924

REACTIONS (7)
  - Nausea [None]
  - Tremor [None]
  - Headache [None]
  - Chest pain [None]
  - Tachycardia [None]
  - Photophobia [None]
  - Chest discomfort [None]

NARRATIVE: CASE EVENT DATE: 20200924
